FAERS Safety Report 9886240 (Version 1)
Quarter: 2014Q1

REPORT INFORMATION
  Report Type: Spontaneous
  Country: FR (occurrence: FR)
  Receive Date: 20140210
  Receipt Date: 20140210
  Transmission Date: 20141002
  Serious: Yes (Other)
  Sender: FDA-Public Use
  Company Number: FR-WATSON-2014-01820

PATIENT
  Age: 65 Year
  Sex: Female
  Weight: 88 kg

DRUGS (11)
  1. RIFAMPICIN (UNKNOWN) [Suspect]
     Indication: TUBERCULOSIS
     Dosage: 900 MG, DAILY
     Route: 048
  2. CYCLOSPORINE (UNKNOWN) [Interacting]
     Indication: IMMUNOSUPPRESSANT DRUG THERAPY
     Dosage: 100 MG, DAILY
     Route: 048
  3. FLUINDIONE [Interacting]
     Indication: JUGULAR VEIN THROMBOSIS
     Dosage: 20 MG, DAILY
     Route: 048
  4. FLUINDIONE [Interacting]
     Indication: PULMONARY EMBOLISM
  5. PREDNISONE [Concomitant]
     Indication: IMMUNOSUPPRESSANT DRUG THERAPY
     Dosage: 10 MG, DAILY
     Route: 065
  6. MYCOPHENOLIC ACID [Concomitant]
     Indication: IMMUNOSUPPRESSANT DRUG THERAPY
     Dosage: 1000 MG, DAILY
     Route: 065
  7. FRESUBIN [Concomitant]
     Indication: ENTERAL NUTRITION
     Dosage: UNK
     Route: 050
  8. ISONIAZIDE [Concomitant]
     Indication: TUBERCULOSIS
     Dosage: UNK
     Route: 065
  9. ETHAMBUTOL [Concomitant]
     Indication: TUBERCULOSIS
     Dosage: UNK
     Route: 065
  10. PYRAZINAMIDE [Concomitant]
     Indication: TUBERCULOSIS
     Dosage: UNK
     Route: 065
  11. UNFRACTIONATED HEPARIN [Concomitant]
     Indication: JUGULAR VEIN THROMBOSIS
     Dosage: UNK
     Route: 065

REACTIONS (4)
  - Haemoptysis [Recovered/Resolved]
  - International normalised ratio increased [Recovered/Resolved]
  - Immunosuppressant drug level decreased [Recovered/Resolved]
  - Drug interaction [Recovered/Resolved]
